FAERS Safety Report 4449012-2 (Version None)
Quarter: 2004Q3

REPORT INFORMATION
  Report Type: 
  Country: None (occurrence: None)
  Receive Date: 20040910
  Receipt Date: 20040830
  Transmission Date: 20050211
  Serious: Yes (Other)
  Sender: FDA-Public Use
  Company Number: 2004230734CA

PATIENT
  Sex: Female

DRUGS (1)
  1. CYTOTEC [Suspect]
     Indication: LABOUR INDUCTION
     Dosage: VAGINAL
     Route: 067

REACTIONS (2)
  - AMNIOTIC CAVITY DISORDER [None]
  - PHARMACEUTICAL PRODUCT COMPLAINT [None]
